FAERS Safety Report 4372540-5 (Version None)
Quarter: 2004Q2

REPORT INFORMATION
  Report Type: 
  Country: None (occurrence: None)
  Receive Date: 20040608
  Receipt Date: 20040526
  Transmission Date: 20050107
  Serious: Yes (Other)
  Sender: FDA-Public Use
  Company Number: PHBS2004JP07004

PATIENT
  Sex: Female

DRUGS (1)
  1. GLEEVEC [Suspect]
     Indication: EOSINOPHILIA
     Dosage: 100 MG/DAY
     Route: 048
     Dates: start: 20040524, end: 20040525

REACTIONS (2)
  - CARDIAC FAILURE [None]
  - MITRAL VALVE STENOSIS [None]
